FAERS Safety Report 4630876-4 (Version None)
Quarter: 2005Q2

REPORT INFORMATION
  Report Type: 
  Country: None (occurrence: None)
  Receive Date: 20050404
  Receipt Date: 20050404
  Transmission Date: 20051028
  Serious: Yes (Life-Threatening, Hospitalization)
  Sender: FDA-Public Use
  Company Number: None

PATIENT
  Sex: Female
  Weight: 109.3169 kg

DRUGS (1)
  1. GEMCITABINE [Suspect]
     Indication: PANCREATIC CARCINOMA
     Dosage: 1000 MG WEEKLY X 3  THEN 1 WK OFF
     Dates: start: 20040908, end: 20050201

REACTIONS (31)
  - ANURIA [None]
  - BLISTER [None]
  - BLOOD PRESSURE IMMEASURABLE [None]
  - COMA [None]
  - CULTURE WOUND POSITIVE [None]
  - DEHYDRATION [None]
  - DIALYSIS [None]
  - DIARRHOEA [None]
  - ECCHYMOSIS [None]
  - ENTEROCOCCAL INFECTION [None]
  - EPISTAXIS [None]
  - ESCHAR [None]
  - FEELING ABNORMAL [None]
  - GENERALISED OEDEMA [None]
  - HYPERKALAEMIA [None]
  - HYPOALBUMINAEMIA [None]
  - HYPOCALCAEMIA [None]
  - HYPOGLYCAEMIA [None]
  - HYPOTENSION [None]
  - HYPOTHERMIA [None]
  - LEUKOPENIA [None]
  - MUCOUS MEMBRANE DISORDER [None]
  - PSEUDOMONAS INFECTION [None]
  - RENAL FAILURE ACUTE [None]
  - SEPSIS [None]
  - SKIN ODOUR ABNORMAL [None]
  - TREMOR [None]
  - TROUSSEAU'S SYNDROME [None]
  - ULCER [None]
  - VASCULITIS [None]
  - WOUND INFECTION [None]
